FAERS Safety Report 11172509 (Version 1)
Quarter: 2015Q2

REPORT INFORMATION
  Report Type: Spontaneous
  Country: US (occurrence: US)
  Receive Date: 20150608
  Receipt Date: 20150608
  Transmission Date: 20150821
  Serious: No
  Sender: FDA-Public Use
  Company Number: US-AMGEN-USASP2014092888

PATIENT
  Age: 53 Year
  Sex: Female
  Weight: 52.15 kg

DRUGS (35)
  1. SENSIPAR [Concomitant]
     Active Substance: CINACALCET HYDROCHLORIDE
     Dosage: 30 MG, 1/D
     Dates: start: 20141202
  2. BUPROPION [Concomitant]
     Active Substance: BUPROPION
     Dosage: 75 MG, HS
     Dates: start: 20141202
  3. BUPROPION [Concomitant]
     Active Substance: BUPROPION
     Dosage: 75 MG, HS
     Dates: start: 20150121
  4. LEVOTHYROXINE SODIUM. [Concomitant]
     Active Substance: LEVOTHYROXINE SODIUM
     Dosage: 50 MCG, QD
     Dates: start: 20150121
  5. VITAMIN D [Concomitant]
     Active Substance: CHOLECALCIFEROL
     Dosage: 50 K, WK
     Dates: start: 20141202
  6. LEVOTHYROXINE SODIUM. [Concomitant]
     Active Substance: LEVOTHYROXINE SODIUM
     Dosage: 50 MCG, 1 TAB DAILY
     Dates: start: 20141202
  7. SODIUM BICARBONATE. [Concomitant]
     Active Substance: SODIUM BICARBONATE
     Dosage: 650 MG, 1/D
     Dates: start: 20141202
  8. ALDARA [Concomitant]
     Active Substance: IMIQUIMOD
     Dosage: 5 %, APPLY IN PM 3X WK
     Dates: start: 20141202
  9. CARVEDILOL. [Concomitant]
     Active Substance: CARVEDILOL
     Dosage: 6.25 MG, BID
     Dates: start: 20150121
  10. NEXIUM [Concomitant]
     Active Substance: ESOMEPRAZOLE MAGNESIUM
     Dosage: 40 MG, QD
     Dates: start: 20150121
  11. MIACALCIN [Concomitant]
     Active Substance: CALCITONIN SALMON
     Dosage: 200U, 1 PUFF DAILY
     Dates: start: 20141202
  12. AZATHIOPRINE. [Concomitant]
     Active Substance: AZATHIOPRINE
     Dosage: 50 MG, 1 1/2 QD
     Dates: start: 20141202
  13. SIMVASTATIN. [Concomitant]
     Active Substance: SIMVASTATIN
     Dosage: 20 MG, HS
     Dates: start: 20150121
  14. NEXIUM [Concomitant]
     Active Substance: ESOMEPRAZOLE MAGNESIUM
     Dosage: 40 MG, 1 TAB DAILY
     Dates: start: 20141202
  15. RAPAMUNE [Concomitant]
     Active Substance: SIROLIMUS
     Dosage: 1 MG, 5 TAB QD
     Dates: start: 20150121
  16. AZATHIOPRINE. [Concomitant]
     Active Substance: AZATHIOPRINE
     Dosage: 50 MG, 1 1/2 QD
     Dates: start: 20150121
  17. PREDNISONE. [Concomitant]
     Active Substance: PREDNISONE
     Dosage: 5 MG, 1 TAB DAILY
     Dates: start: 20141202
  18. SIMVASTATIN. [Concomitant]
     Active Substance: SIMVASTATIN
     Dosage: 20 MG, 1 TAB PM
     Dates: start: 20141202
  19. LIOTHYRONINE [Concomitant]
     Active Substance: LIOTHYRONINE
     Dosage: 5 MCG, CYTOMEL 1 QD
     Dates: start: 20141202
  20. AUGMENTIN [Concomitant]
     Active Substance: AMOXICILLIN\CLAVULANATE POTASSIUM
     Indication: URINARY TRACT INFECTION
     Dosage: UNK MG, PRN
  21. PROCRIT [Suspect]
     Active Substance: ERYTHROPOIETIN
     Dosage: 10,000 UNITS, 1X WK
     Route: 058
     Dates: start: 20141202
  22. PROCRIT [Suspect]
     Active Substance: ERYTHROPOIETIN
  23. RAPAMUNE [Concomitant]
     Active Substance: SIROLIMUS
     Dosage: 1 MG, 5 TAB DAILY
     Dates: start: 20141202
  24. ACYCLOVIR                          /00587301/ [Concomitant]
     Active Substance: ACYCLOVIR
     Dosage: 5 %, PRN
     Dates: start: 20150121
  25. SODIUM BICARBONATE. [Concomitant]
     Active Substance: SODIUM BICARBONATE
     Dosage: 650 MG, QD
     Dates: start: 20150121
  26. ALDARA [Concomitant]
     Active Substance: IMIQUIMOD
     Dosage: 5 %, QWK
     Dates: start: 20150121
  27. BACTRIM [Concomitant]
     Active Substance: SULFAMETHOXAZOLE\TRIMETHOPRIM
     Dosage: UNK UNK, PRN AS DIRECTED
  28. CARVEDILOL. [Concomitant]
     Active Substance: CARVEDILOL
     Dosage: 6.25 MG, 1 TAB 2X DAILY
     Dates: start: 20141202
  29. VITAMIN D [Concomitant]
     Active Substance: CHOLECALCIFEROL
     Dosage: 50 K, QMONTH
     Dates: start: 20150121
  30. SENSIPAR [Concomitant]
     Active Substance: CINACALCET HYDROCHLORIDE
     Dosage: 30 MG, 2QD
     Dates: start: 20150121
  31. PREDNISONE. [Concomitant]
     Active Substance: PREDNISONE
     Dosage: 5 MG, QD
     Dates: start: 20150121
  32. LIOTHYRONINE [Concomitant]
     Active Substance: LIOTHYRONINE
     Dosage: 5 MCG, QD
     Dates: start: 20150121
  33. MIACALCIN [Concomitant]
     Active Substance: CALCITONIN SALMON
     Dosage: 200U, 1 P QD
     Dates: start: 20150121
  34. ACYCLOVIR                          /00587301/ [Concomitant]
     Active Substance: ACYCLOVIR
     Dosage: 5 %, APPLY EVERY 3 HRS
     Dates: start: 20141202
  35. LEVAQUIN [Concomitant]
     Active Substance: LEVOFLOXACIN
     Indication: URINARY TRACT INFECTION
     Dosage: UNK UNK, PRN
     Dates: start: 20141120

REACTIONS (2)
  - Underdose [Not Recovered/Not Resolved]
  - Haematocrit abnormal [Not Recovered/Not Resolved]
